FAERS Safety Report 22956193 (Version 11)
Quarter: 2025Q3

REPORT INFORMATION
  Report Type: Spontaneous
  Country: JP (occurrence: JP)
  Receive Date: 20230919
  Receipt Date: 20250802
  Transmission Date: 20251021
  Serious: Yes (Death, Hospitalization, Other)
  Sender: ALEXION PHARMACEUTICALS
  Company Number: JP-ALXN-A202310360AA

PATIENT
  Age: 82 Year
  Sex: Male
  Weight: 61.1 kg

DRUGS (5)
  1. SOLIRIS [Suspect]
     Active Substance: ECULIZUMAB
     Indication: Paroxysmal nocturnal haemoglobinuria
     Dosage: 600 MILLIGRAM, QW
     Dates: start: 20150903, end: 20150924
  2. SOLIRIS [Suspect]
     Active Substance: ECULIZUMAB
     Dosage: 900 MILLIGRAM, Q2W
     Dates: start: 20151001
  3. SOLIRIS [Suspect]
     Active Substance: ECULIZUMAB
     Dosage: 900 MILLIGRAM, Q2W
     Dates: start: 20210924, end: 20230911
  4. PREDNISOLONE [Suspect]
     Active Substance: PREDNISOLONE
     Indication: Paroxysmal nocturnal haemoglobinuria
     Dosage: 5 DOSAGE FORM, BID
     Route: 065
     Dates: start: 20230721, end: 20230803
  5. AMLODIPINE [Concomitant]
     Active Substance: AMLODIPINE BESYLATE

REACTIONS (6)
  - Cholecystitis [Fatal]
  - Haemolysis [Unknown]
  - Cardiac failure congestive [Not Recovered/Not Resolved]
  - Steroid diabetes [Not Recovered/Not Resolved]
  - Cholelithiasis [Unknown]
  - Product preparation issue [Unknown]

NARRATIVE: CASE EVENT DATE: 20230330
